FAERS Safety Report 5882945-9 (Version None)
Quarter: 2008Q3

REPORT INFORMATION
  Report Type: 
  Country: None (occurrence: None)
  Receive Date: 20080913
  Receipt Date: 20080821
  Transmission Date: 20090109
  Serious: No
  Sender: FDA-Public Use
  Company Number: US-ABBOTT-08P-163-0472108-00

PATIENT
  Sex: Female
  Weight: 89.892 kg

DRUGS (6)
  1. HUMIRA [Suspect]
     Indication: RHEUMATOID ARTHRITIS
     Route: 050
  2. AMLODIPINE [Concomitant]
     Indication: HYPERTENSION
     Route: 048
     Dates: start: 20070101
  3. UROSO-FORTE [Concomitant]
     Indication: HEPATOMEGALY
     Route: 048
     Dates: start: 20070101
  4. COLCHICINE [Concomitant]
     Indication: LIVER DISORDER
     Route: 048
     Dates: start: 20070101
  5. DYAZIDE [Concomitant]
     Indication: HYPERTENSION
     Dosage: 75/50 MILLIGRAMS
     Route: 048
     Dates: start: 20070101
  6. ISONIAZID [Concomitant]
     Indication: TUBERCULIN TEST POSITIVE
     Route: 048
     Dates: start: 20080301

REACTIONS (3)
  - ACCIDENTAL EXPOSURE [None]
  - GASTROOESOPHAGEAL REFLUX DISEASE [None]
  - INJECTION SITE HAEMORRHAGE [None]
